FAERS Safety Report 4849228-7 (Version None)
Quarter: 2005Q4

REPORT INFORMATION
  Report Type: 
  Country: None (occurrence: None)
  Receive Date: 20051209
  Receipt Date: 20051125
  Transmission Date: 20060501
  Serious: Yes (Hospitalization)
  Sender: FDA-Public Use
  Company Number: AU-JNJFOC-20051200640

PATIENT
  Age: 86 Year
  Sex: Male

DRUGS (5)
  1. TRAMADOL HYDROCHLORIDE [Suspect]
     Indication: OSTEOARTHRITIS
     Route: 065
  2. LISINOPRIL [Concomitant]
     Route: 065
  3. PRAZOSIN HCL [Concomitant]
     Route: 065
  4. DIGOXIN [Concomitant]
     Route: 065
  5. ALLOPURINOL [Concomitant]
     Indication: GOUT
     Route: 065

REACTIONS (5)
  - ABNORMAL BEHAVIOUR [None]
  - AGITATION [None]
  - ANGER [None]
  - CONFUSIONAL STATE [None]
  - HALLUCINATION [None]
